FAERS Safety Report 25221270 (Version 1)
Quarter: 2025Q2

REPORT INFORMATION
  Report Type: Spontaneous
  Country: US (occurrence: US)
  Receive Date: 20250421
  Receipt Date: 20250421
  Transmission Date: 20250717
  Serious: No
  Sender: UCB
  Company Number: US-UCBSA-2024015322

PATIENT
  Age: 74 Year
  Sex: Male

DRUGS (3)
  1. NEUPRO [Suspect]
     Active Substance: ROTIGOTINE
     Indication: Restless legs syndrome
     Dates: start: 202102
  2. NEUPRO [Suspect]
     Active Substance: ROTIGOTINE
  3. NEUPRO [Suspect]
     Active Substance: ROTIGOTINE

REACTIONS (4)
  - Pain of skin [Unknown]
  - Skin irritation [Unknown]
  - Blister [Unknown]
  - Product quality issue [Unknown]

NARRATIVE: CASE EVENT DATE: 20240301
